FAERS Safety Report 16151386 (Version 1)
Quarter: 2019Q2

REPORT INFORMATION
  Report Type: Spontaneous
  Country: US (occurrence: US)
  Receive Date: 20190228
  Receipt Date: 20190228
  Transmission Date: 20190711
  Serious: Yes (Hospitalization)
  Sender: FDA-Public Use
  Company Number: None

PATIENT
  Age: 56 Year
  Sex: Female

DRUGS (1)
  1. OFLOXACIN 0.3% OPTH [Suspect]
     Active Substance: OFLOXACIN
     Indication: MEDICAL DEVICE IMPLANTATION

REACTIONS (1)
  - Seizure [None]
